FAERS Safety Report 5043861-8 (Version None)
Quarter: 2006Q2

REPORT INFORMATION
  Report Type: 
  Country: None (occurrence: None)
  Receive Date: 20060629
  Receipt Date: 20060615
  Transmission Date: 20061013
  Serious: Yes (Hospitalization)
  Sender: FDA-Public Use
  Company Number: 2006-BP-06779RO

PATIENT
  Age: 75 Year
  Sex: Female

DRUGS (2)
  1. PREDNISONE TAB [Suspect]
     Dosage: 1 TABLET DAILY (50 MG), PO
     Route: 048
     Dates: start: 20060602, end: 20060613
  2. PREDNISONE TAB [Suspect]
     Dosage: 1 TABLET DAILY (10 MG), PO
     Route: 048
     Dates: start: 20060602, end: 20060613

REACTIONS (8)
  - CEREBROVASCULAR ACCIDENT [None]
  - DRUG INEFFECTIVE [None]
  - HAEMORRHAGE [None]
  - HYPERSOMNIA [None]
  - HYPOAESTHESIA [None]
  - LISTLESS [None]
  - PERIPHERAL VASCULAR DISORDER [None]
  - PHARMACEUTICAL PRODUCT COMPLAINT [None]
